FAERS Safety Report 5525241-1 (Version None)
Quarter: 2007Q4

REPORT INFORMATION
  Report Type: 
  Country: None (occurrence: None)
  Receive Date: 20071119
  Receipt Date: 20071119
  Transmission Date: 20080405
  Serious: Yes (Other)
  Sender: FDA-Public Use
  Company Number: None

PATIENT
  Age: 44 Year
  Sex: Male
  Weight: 95.2554 kg

DRUGS (3)
  1. LEVAQUIN [Suspect]
     Indication: NASAL POLYPS
     Dates: start: 20071116, end: 20071116
  2. LEVAQUIN [Suspect]
     Indication: RHINITIS
     Dates: start: 20071116, end: 20071116
  3. PREDNISONE TAB [Concomitant]

REACTIONS (1)
  - ANAPHYLACTIC SHOCK [None]
